FAERS Safety Report 4534181-6 (Version None)
Quarter: 2004Q4

REPORT INFORMATION
  Report Type: 
  Country: None (occurrence: None)
  Receive Date: 20041221
  Receipt Date: 20041221
  Transmission Date: 20050328
  Serious: Yes (Death)
  Sender: FDA-Public Use
  Company Number: None

PATIENT
  Age: 47 Year
  Sex: Female
  Weight: 81.6475 kg

DRUGS (2)
  1. EFFEXOR XR [Suspect]
     Dosage: 300 MGS  TWICE A DAY  ORAL
     Route: 048
     Dates: start: 20030703, end: 20031216
  2. REMERON [Suspect]
     Dosage: 90 MGS   NIGHT   ORAL
     Route: 048
     Dates: start: 20030726, end: 20031216

REACTIONS (3)
  - CONVULSION [None]
  - HYPERTENSION [None]
  - MIGRAINE [None]
